FAERS Safety Report 10782807 (Version 1)
Quarter: 2015Q1

REPORT INFORMATION
  Report Type: Spontaneous
  Country: FR (occurrence: FR)
  Receive Date: 20150210
  Receipt Date: 20150210
  Transmission Date: 20150721
  Serious: Yes (Hospitalization)
  Sender: FDA-Public Use
  Company Number: FR-PFIZER INC-2015046150

PATIENT
  Age: 65 Year
  Sex: Male

DRUGS (19)
  1. RIFADINE [Suspect]
     Active Substance: RIFAMPIN
     Dosage: 600 MG, 2X/DAY
     Route: 048
     Dates: start: 20140728
  2. ZYVOXID [Suspect]
     Active Substance: LINEZOLID
     Indication: STAPHYLOCOCCAL INFECTION
     Dosage: 600 MG, 2X/DAY (EVERY 12 HOURS)
     Route: 042
     Dates: start: 20140723, end: 20140729
  3. BISOPROLOL [Concomitant]
     Active Substance: BISOPROLOL
     Dosage: 10 MG, DAILY
  4. EFIENT [Concomitant]
     Active Substance: PRASUGREL HYDROCHLORIDE
     Dosage: 10 MG, DAILY
  5. AMLOR [Concomitant]
     Active Substance: AMLODIPINE BESYLATE
     Dosage: 10 MG, DAILY
  6. OGAST [Concomitant]
     Active Substance: LANSOPRAZOLE
     Dosage: 15 MG, DAILY
  7. DIAMICRON [Concomitant]
     Active Substance: GLICLAZIDE
     Dosage: 120 MG, DAILY
  8. NOVORAPID [Concomitant]
     Active Substance: INSULIN ASPART
     Dosage: 8 IU, 3X/DAY
  9. GENTAMICINE [Suspect]
     Active Substance: GENTAMICIN
     Indication: WOUND INFECTION
     Dosage: UNK
     Route: 042
     Dates: start: 20140722
  10. ACUPAN [Suspect]
     Active Substance: NEFOPAM HYDROCHLORIDE
     Dosage: UNK
     Route: 048
     Dates: start: 20140723
  11. DIFFU K [Concomitant]
     Active Substance: POTASSIUM CHLORIDE
     Dosage: 2 DF, DAILY
  12. DISCOTRINE [Concomitant]
     Active Substance: NITROGLYCERIN
     Dosage: 10 MG, DAILY
  13. LANTUS [Concomitant]
     Active Substance: INSULIN GLARGINE
     Dosage: 28 IU, DAILY
  14. KARDEGIC [Concomitant]
     Active Substance: ASPIRIN LYSINE
     Dosage: 160 MG, DAILY
  15. RAMIPRIL. [Concomitant]
     Active Substance: RAMIPRIL
     Dosage: 5 MG, 2X/DAY
  16. FUROSEMIDE. [Concomitant]
     Active Substance: FUROSEMIDE
     Dosage: 60 MG, DAILY
  17. TAZOCILLINE [Suspect]
     Active Substance: PIPERACILLIN SODIUM\TAZOBACTAM SODIUM
     Indication: WOUND INFECTION
     Dosage: 4 G, 3X/DAY
     Route: 042
     Dates: start: 20140722, end: 20140726
  18. LOVENOX [Suspect]
     Active Substance: ENOXAPARIN SODIUM
     Dosage: 4000 IU, DAILY
     Route: 058
     Dates: start: 20140722, end: 20140731
  19. CRESTOR [Concomitant]
     Active Substance: ROSUVASTATIN CALCIUM
     Dosage: 10 MG, DAILY

REACTIONS (1)
  - Hypersensitivity vasculitis [Recovered/Resolved]

NARRATIVE: CASE EVENT DATE: 20140728
